FAERS Safety Report 6831431-8 (Version None)
Quarter: 2010Q3

REPORT INFORMATION
  Report Type: 
  Country: None (occurrence: None)
  Receive Date: 20100712
  Receipt Date: 20100625
  Transmission Date: 20110219
  Serious: Yes (Other)
  Sender: FDA-Public Use
  Company Number: PHHY2010DE41695

PATIENT
  Sex: Female

DRUGS (1)
  1. TERBINAFIN SANDOZ [Suspect]
     Dosage: 250 MG, UNK
     Route: 048

REACTIONS (2)
  - ADVERSE EVENT [None]
  - BONE LESION [None]
